FAERS Safety Report 11232716 (Version 1)
Quarter: 2015Q3

REPORT INFORMATION
  Report Type: Other
  Country: GB (occurrence: GB)
  Receive Date: 20150701
  Receipt Date: 20150701
  Transmission Date: 20151125
  Serious: Yes (Other)
  Sender: FDA-Public Use
  Company Number: GB-TAKEDA-2015TUS008475

PATIENT
  Age: 52 Year
  Sex: Male
  Weight: 123 kg

DRUGS (9)
  1. COLCHICINE. [Concomitant]
     Active Substance: COLCHICINE
     Dosage: 500 ?G, BID
  2. OMEPRAZOLE. [Concomitant]
     Active Substance: OMEPRAZOLE
     Dosage: 20 MG, QD
  3. PREGABALIN. [Concomitant]
     Active Substance: PREGABALIN
     Dosage: 150 MG, BID
  4. RAMIPRIL. [Concomitant]
     Active Substance: RAMIPRIL
     Dosage: 5 MG, QD
  5. NAPROXEN. [Concomitant]
     Active Substance: NAPROXEN
     Dosage: 500 ?G, BID
  6. ADENURIC [Suspect]
     Active Substance: FEBUXOSTAT
     Indication: GOUT
     Dosage: 80 MG QD
     Route: 048
     Dates: start: 20150521, end: 20150529
  7. SALAMOL                            /00139501/ [Concomitant]
     Dosage: 200 ?G, QID
  8. SYMBICORT [Concomitant]
     Active Substance: BUDESONIDE\FORMOTEROL FUMARATE DIHYDRATE
     Dosage: 1 DF, BID
  9. ZAPAIN [Concomitant]
     Active Substance: ACETAMINOPHEN\CODEINE PHOSPHATE
     Dosage: 2 DF, QID

REACTIONS (3)
  - Abdominal discomfort [Not Recovered/Not Resolved]
  - Rectal haemorrhage [Not Recovered/Not Resolved]
  - Change of bowel habit [Not Recovered/Not Resolved]

NARRATIVE: CASE EVENT DATE: 20150502
